FAERS Safety Report 4831642-7 (Version None)
Quarter: 2005Q4

REPORT INFORMATION
  Report Type: 
  Country: None (occurrence: None)
  Receive Date: 20051116
  Receipt Date: 20051103
  Transmission Date: 20060501
  Serious: Yes (Life-Threatening, Other)
  Sender: FDA-Public Use
  Company Number: 2005144048

PATIENT
  Age: 66 Year
  Sex: Female
  Weight: 70 kg

DRUGS (2)
  1. VFEND [Suspect]
     Indication: SYSTEMIC CANDIDA
     Dosage: 200 MG (5 IN 1 D), INTRAVENOUS
     Route: 042
     Dates: start: 20050808, end: 20050813
  2. CORTICOSTEROIDS (CORTICOSTEROIDS) [Concomitant]

REACTIONS (5)
  - BLOOD CULTURE POSITIVE [None]
  - CARDIAC ARREST [None]
  - MALAISE [None]
  - SINUS BRADYCARDIA [None]
  - SYNCOPE [None]
